FAERS Safety Report 18792632 (Version 1)
Quarter: 2021Q1

REPORT INFORMATION
  Report Type: Report from Study
  Country: HU (occurrence: HU)
  Receive Date: 20210127
  Receipt Date: 20210127
  Transmission Date: 20210419
  Serious: Yes (Other)
  Sender: FDA-Public Use
  Company Number: HU-JNJFOC-20201242377

PATIENT
  Age: 47 Year
  Sex: Male

DRUGS (5)
  1. ABIRATERONE ACETATE. [Suspect]
     Active Substance: ABIRATERONE ACETATE
     Indication: PROSTATE CANCER
     Route: 048
     Dates: start: 20200803, end: 20201221
  2. DOCETAXEL. [Suspect]
     Active Substance: DOCETAXEL
     Indication: PROSTATE CANCER
     Route: 065
  3. FLUGALIN [Concomitant]
     Route: 065
  4. METFORMIN [Concomitant]
     Active Substance: METFORMIN HYDROCHLORIDE
     Indication: DIABETES MELLITUS
     Route: 065
  5. ZOLEDRONIC ACID [Concomitant]
     Active Substance: ZOLEDRONIC ACID
     Route: 065

REACTIONS (2)
  - Back pain [Not Recovered/Not Resolved]
  - Lymphoedema [Recovered/Resolved]

NARRATIVE: CASE EVENT DATE: 20200826
